FAERS Safety Report 7917228-6 (Version None)
Quarter: 2011Q4

REPORT INFORMATION
  Report Type: 
  Country: None (occurrence: None)
  Receive Date: 20111116
  Receipt Date: 20111102
  Transmission Date: 20120403
  Serious: Yes (Hospitalization, Other)
  Sender: FDA-Public Use
  Company Number: PHHY2011FR68227

PATIENT
  Sex: Female

DRUGS (12)
  1. CERTICAN [Suspect]
     Dosage: 3.5 MG DAILY
     Dates: start: 20110716
  2. VITAMIN B-12 [Concomitant]
  3. PREDNISONE [Concomitant]
     Dates: start: 20110301
  4. ATORVASTATIN CALCIUM [Concomitant]
     Dosage: 1 DF, QD
     Dates: start: 20110301
  5. MICERA [Concomitant]
     Dosage: 100 UG, UNK
  6. VALACYCLOVIR HYDROCHLORIDE [Concomitant]
     Dosage: 1000 MG, TID
     Dates: start: 20110301, end: 20110707
  7. FOLATE SODIUM [Concomitant]
  8. RAMIPRIL [Concomitant]
     Dosage: 2.5 MG, QD
     Dates: start: 20110415
  9. CERTICAN [Suspect]
     Indication: RENAL TRANSPLANT
     Dates: start: 20110510
  10. NEUPOGEN [Concomitant]
     Dosage: 30 UG DAILY
     Dates: start: 20110713, end: 20110713
  11. ESOMEPRAZOLE [Concomitant]
     Dosage: 20 MG, DAILY
     Dates: start: 20110301, end: 20110708
  12. BACTRIM [Concomitant]
     Indication: IMMUNOSUPPRESSION
     Dosage: 1 DF, TIW
     Dates: start: 20110301, end: 20110704

REACTIONS (8)
  - NEUTROPENIA [None]
  - ERYTHROBLASTOSIS [None]
  - ANAEMIA [None]
  - HAEMOGLOBIN DECREASED [None]
  - RENAL FAILURE ACUTE [None]
  - PANCYTOPENIA [None]
  - THROMBOCYTOPENIA [None]
  - ANISOCYTOSIS [None]
